FAERS Safety Report 17209171 (Version 1)
Quarter: 2019Q4

REPORT INFORMATION
  Report Type: Spontaneous
  Country: AR (occurrence: AR)
  Receive Date: 20191227
  Receipt Date: 20191227
  Transmission Date: 20200122
  Serious: Yes (Other)
  Sender: FDA-Public Use
  Company Number: NVSC2019AR054507

PATIENT
  Sex: Female

DRUGS (1)
  1. TRAVATAN [Suspect]
     Active Substance: TRAVOPROST
     Indication: GLAUCOMA
     Dosage: 1 GTT, QD (6 YEARS AGO)
     Route: 065

REACTIONS (14)
  - Depression [Unknown]
  - Anxiety [Unknown]
  - Palpitations [Unknown]
  - Constipation [Recovered/Resolved]
  - Hypersensitivity [Recovered/Resolved]
  - Pain in extremity [Unknown]
  - Suicidal behaviour [Unknown]
  - Heart rate irregular [Unknown]
  - Tinnitus [Recovered/Resolved]
  - Insomnia [Unknown]
  - Hypoacusis [Unknown]
  - Pruritus [Recovered/Resolved]
  - Asthenia [Unknown]
  - Heart rate decreased [Unknown]
